FAERS Safety Report 19326277 (Version 2)
Quarter: 2021Q2

REPORT INFORMATION
  Report Type: Spontaneous
  Country: BR (occurrence: BR)
  Receive Date: 20210528
  Receipt Date: 20210609
  Transmission Date: 20210717
  Serious: Yes (Hospitalization)
  Sender: FDA-Public Use
  Company Number: BR-009507513-2105BRA005242

PATIENT
  Age: 35 Year
  Sex: Male
  Weight: 97.5 kg

DRUGS (8)
  1. BRIDION [Suspect]
     Active Substance: SUGAMMADEX
     Indication: NEUROMUSCULAR BLOCKADE REVERSAL
     Dosage: 200MG/2ML
     Route: 042
     Dates: start: 20210218, end: 20210218
  2. ALIZAPRIDE [Concomitant]
     Active Substance: ALIZAPRIDE
     Indication: NAUSEA
     Dosage: 50MG/2ML, ONCE
     Route: 042
     Dates: start: 20210218, end: 20210218
  3. PROPOFOL. [Suspect]
     Active Substance: PROPOFOL
     Indication: ANAESTHESIA
     Dosage: PFS 2% 1000MG SYRINGE 50ML INJECTABLE
     Route: 042
     Dates: start: 20210218, end: 20210218
  4. PARECOXIB [Concomitant]
     Active Substance: PARECOXIB
     Indication: ANTIINFLAMMATORY THERAPY
     Dosage: 40 MILLIGRAM, ONCE
     Route: 042
     Dates: start: 20210218, end: 20210218
  5. HALOPERIDOL. [Suspect]
     Active Substance: HALOPERIDOL
     Dosage: UNK
     Dates: start: 2021
  6. REMIFENTANIL [Concomitant]
     Active Substance: REMIFENTANIL
     Indication: ANAESTHESIA
     Dosage: 2 MILLIGRAM, ONCE
     Dates: start: 20210218, end: 20210218
  7. ROCURONIUM BROMIDE. [Concomitant]
     Active Substance: ROCURONIUM BROMIDE
     Indication: NEUROMUSCULAR BLOCKADE
     Dosage: 50MG/5ML, ONE AMPOULE ONCE
     Route: 042
     Dates: start: 20210218, end: 20210218
  8. FENTANIL [Concomitant]
     Active Substance: FENTANYL
     Indication: ANAESTHESIA
     Dosage: 250 MCG/5 ML, ONCE
     Route: 042
     Dates: start: 20210218, end: 20210218

REACTIONS (3)
  - Eyelid oedema [Recovered/Resolved]
  - Treatment failure [Unknown]
  - Agitation [Recovered/Resolved]

NARRATIVE: CASE EVENT DATE: 2021
